FAERS Safety Report 4326079-3 (Version None)
Quarter: 2004Q1

REPORT INFORMATION
  Report Type: 
  Country: None (occurrence: None)
  Receive Date: 20040323
  Receipt Date: 20040308
  Transmission Date: 20041129
  Serious: Yes (Hospitalization)
  Sender: FDA-Public Use
  Company Number: 2004016002

PATIENT
  Age: 31 Year
  Sex: Female
  Weight: 77.1115 kg

DRUGS (4)
  1. ZOLOFT [Suspect]
     Indication: HEADACHE
     Dosage: 25 MG (DAILY)
     Dates: start: 19990301, end: 20030901
  2. IBUPROFEN [Concomitant]
  3. CANDESARTAN CILEXETIL [Concomitant]
  4. AMLODIPINE BESYLATE [Concomitant]

REACTIONS (1)
  - BIPOLAR DISORDER [None]
